FAERS Safety Report 6492367-8 (Version None)
Quarter: 2009Q4

REPORT INFORMATION
  Report Type: 
  Country: None (occurrence: None)
  Receive Date: 20091214
  Receipt Date: 20091209
  Transmission Date: 20100525
  Serious: Yes (Death, Hospitalization, Other)
  Sender: FDA-Public Use
  Company Number: JP-ELI_LILLY_AND_COMPANY-JP200912002233

PATIENT
  Sex: Male
  Weight: 61.8 kg

DRUGS (3)
  1. GEMCITABINE HCL [Suspect]
     Indication: PANCREATIC CARCINOMA NON-RESECTABLE
     Dosage: 1000 MG/M2, OTHER
     Route: 042
     Dates: start: 20090206, end: 20091029
  2. TS 1 (DRUG CODE 015935.01.001) [Suspect]
     Indication: PANCREATIC CARCINOMA NON-RESECTABLE
     Dosage: 50 MG, 2/D
     Route: 048
     Dates: start: 20090206, end: 20090618
  3. TS 1 (DRUG CODE 015935.01.001) [Suspect]
     Dosage: 60 MG, 2/D
     Route: 048
     Dates: start: 20090625, end: 20091105

REACTIONS (3)
  - ACUTE RESPIRATORY DISTRESS SYNDROME [None]
  - DISSEMINATED INTRAVASCULAR COAGULATION [None]
  - INTERSTITIAL LUNG DISEASE [None]
